FAERS Safety Report 10697385 (Version 1)
Quarter: 2015Q1

REPORT INFORMATION
  Report Type: Spontaneous
  Country: US (occurrence: None)
  Receive Date: 20150107
  Receipt Date: 20150107
  Transmission Date: 20150721
  Serious: No
  Sender: FDA-Public Use
  Company Number: None

PATIENT
  Age: 54 Year
  Sex: Female
  Weight: 60.78 kg

DRUGS (2)
  1. DEXILANT [Suspect]
     Active Substance: DEXLANSOPRAZOLE
     Indication: GASTROOESOPHAGEAL REFLUX DISEASE
     Dosage: 1 CAPSULE
     Route: 048
     Dates: start: 20141115, end: 20141206
  2. DEXILANT [Suspect]
     Active Substance: DEXLANSOPRAZOLE
     Indication: GASTRITIS
     Dosage: 1 CAPSULE
     Route: 048
     Dates: start: 20141115, end: 20141206

REACTIONS (7)
  - Constipation [None]
  - Gastrointestinal hypomotility [None]
  - Abdominal pain upper [None]
  - Acne [None]
  - Arthralgia [None]
  - Hepatic pain [None]
  - Tendon pain [None]

NARRATIVE: CASE EVENT DATE: 20141130
